FAERS Safety Report 14576674 (Version 1)
Quarter: 2018Q1

REPORT INFORMATION
  Report Type: Report from Study
  Country: None (occurrence: CO)
  Receive Date: 20180227
  Receipt Date: 20180227
  Transmission Date: 20180509
  Serious: Yes (Death)
  Sender: FDA-Public Use
  Company Number: CO-ABBVIE-18K-036-2270310-00

PATIENT
  Age: 57 Year
  Sex: Female
  Weight: 57 kg

DRUGS (1)
  1. HUMIRA [Suspect]
     Active Substance: ADALIMUMAB
     Indication: CROHN^S DISEASE
     Route: 058
     Dates: start: 20171214, end: 20171214

REACTIONS (6)
  - Head injury [Fatal]
  - Cardio-respiratory arrest [Fatal]
  - Crohn^s disease [Fatal]
  - Vomiting [Fatal]
  - Fall [Fatal]
  - Joint injury [Fatal]

NARRATIVE: CASE EVENT DATE: 20180206
